FAERS Safety Report 7299357-6 (Version None)
Quarter: 2011Q1

REPORT INFORMATION
  Report Type: 
  Country: None (occurrence: None)
  Receive Date: 20110217
  Receipt Date: 20110211
  Transmission Date: 20110831
  Serious: Yes (Hospitalization)
  Sender: FDA-Public Use
  Company Number: A0913158A

PATIENT
  Age: 37 Year
  Sex: Female

DRUGS (5)
  1. LABETALOL [Concomitant]
  2. ALDOMET [Concomitant]
  3. FOLIC ACID [Concomitant]
  4. LOVAZA [Suspect]
     Indication: IGA NEPHROPATHY
     Dosage: 2CAP TWICE PER DAY
     Route: 048
     Dates: start: 20080801
  5. VITAMIN AND MINERAL PRENATAL SUPPLEMENT W/ FOLIC ACID CAP [Concomitant]

REACTIONS (2)
  - ABORTION SPONTANEOUS [None]
  - DRUG EXPOSURE DURING PREGNANCY [None]
